FAERS Safety Report 14592791 (Version 1)
Quarter: 2018Q1

REPORT INFORMATION
  Report Type: Report from Study
  Country: BR (occurrence: BR)
  Receive Date: 20180302
  Receipt Date: 20180302
  Transmission Date: 20180509
  Serious: Yes (Other)
  Sender: FDA-Public Use
  Company Number: BR-JNJFOC-20180239557

PATIENT
  Age: 63 Year
  Sex: Male

DRUGS (1)
  1. INFLIXIMAB, RECOMBINANT [Suspect]
     Active Substance: INFLIXIMAB
     Indication: RHEUMATOID ARTHRITIS
     Dosage: STARTED TREATMENT 6 YEARS AGO, STOPPED TREATMENT 8 MONTHS AGO
     Route: 042
     Dates: start: 2012, end: 2017

REACTIONS (1)
  - Oesophageal neoplasm [Not Recovered/Not Resolved]

NARRATIVE: CASE EVENT DATE: 201704
